FAERS Safety Report 17937431 (Version 1)
Quarter: 2020Q2

REPORT INFORMATION
  Report Type: Not Available
  Country: US (occurrence: US)
  Receive Date: 20200624
  Receipt Date: 20200624
  Transmission Date: 20200714
  Serious: No
  Sender: FDA-Public Use
  Company Number: US-C B FLEET CO INC-201906-US-001587

PATIENT
  Sex: Female

DRUGS (1)
  1. NIX [Suspect]
     Active Substance: PERMETHRIN
     Indication: PRODUCT USED FOR UNKNOWN INDICATION
     Dosage: DOSAGE UNKNOWN
     Route: 061

REACTIONS (4)
  - Dry skin [Unknown]
  - Pruritus [Unknown]
  - Unevaluable event [Unknown]
  - Blister [Unknown]
